FAERS Safety Report 7057288-0 (Version None)
Quarter: 2010Q4

REPORT INFORMATION
  Report Type: 
  Country: None (occurrence: None)
  Receive Date: 20101022
  Receipt Date: 20101013
  Transmission Date: 20110411
  Serious: Yes (Disabling, Other)
  Sender: FDA-Public Use
  Company Number: BE-ASTRAZENECA-2010SE48301

PATIENT
  Sex: Male

DRUGS (2)
  1. NAROPIN [Suspect]
     Indication: KNEE OPERATION
     Dosage: 0.5 MG/ 3 ML EPIDURAL + POST SURGERY 2 MG/ML
     Route: 008
     Dates: start: 20100701
  2. SUFENTA PRESERVATIVE FREE [Suspect]
     Indication: KNEE OPERATION
     Dosage: +/- 150 UG ON 200 ML NAROPIN/ML

REACTIONS (1)
  - CAUDA EQUINA SYNDROME [None]
